FAERS Safety Report 6970407-7 (Version None)
Quarter: 2010Q3

REPORT INFORMATION
  Report Type: 
  Country: None (occurrence: None)
  Receive Date: 20100908
  Receipt Date: 20100827
  Transmission Date: 20110219
  Serious: Yes (Hospitalization)
  Sender: FDA-Public Use
  Company Number: JP-PFIZER INC-2010108467

PATIENT
  Age: 77 Year
  Sex: Female

DRUGS (1)
  1. CELECOX [Suspect]
     Dosage: UNK
     Dates: start: 20100720

REACTIONS (1)
  - DRUG ERUPTION [None]
